FAERS Safety Report 7950187-9 (Version None)
Quarter: 2011Q4

REPORT INFORMATION
  Report Type: 
  Country: None (occurrence: None)
  Receive Date: 20111130
  Receipt Date: 20100527
  Transmission Date: 20120403
  Serious: Yes (Hospitalization, Other)
  Sender: FDA-Public Use
  Company Number: PHHY2011TW55650

PATIENT
  Sex: Male

DRUGS (1)
  1. GLEEVEC [Suspect]
     Indication: GASTROINTESTINAL STROMAL TUMOUR
     Dosage: 400 MG, UNK
     Dates: end: 20110501

REACTIONS (9)
  - GASTROINTESTINAL STROMAL TUMOUR [None]
  - DIARRHOEA [None]
  - PANCREATIC DISORDER [None]
  - DEPRESSION [None]
  - ABDOMINAL DISCOMFORT [None]
  - ANXIETY [None]
  - INTESTINAL OBSTRUCTION [None]
  - DYSPEPSIA [None]
  - NEOPLASM RECURRENCE [None]
